FAERS Safety Report 17444094 (Version 3)
Quarter: 2020Q2

REPORT INFORMATION
  Report Type: Spontaneous
  Country: US (occurrence: US)
  Receive Date: 20200221
  Receipt Date: 20200625
  Transmission Date: 20200713
  Serious: Yes (Other)
  Sender: FDA-Public Use
  Company Number: US-AMGEN-USASP2020029156

PATIENT
  Age: 64 Year
  Sex: Female
  Weight: 104.31 kg

DRUGS (2)
  1. ENBREL [Suspect]
     Active Substance: ETANERCEPT
     Indication: RHEUMATOID ARTHRITIS
     Dosage: UNK, SINGLE
     Route: 065
  2. ENBREL [Suspect]
     Active Substance: ETANERCEPT
     Dosage: 50 MG, WEEKLY (50 MG 1 PER WEEK)
     Route: 065
     Dates: end: 201912

REACTIONS (4)
  - Drug ineffective [Not Recovered/Not Resolved]
  - Pain [Not Recovered/Not Resolved]
  - Immune system disorder [Not Recovered/Not Resolved]
  - Tuberculosis [Unknown]

NARRATIVE: CASE EVENT DATE: 201912
